FAERS Safety Report 20652511 (Version 3)
Quarter: 2022Q2

REPORT INFORMATION
  Report Type: Spontaneous
  Country: LB (occurrence: LB)
  Receive Date: 20220330
  Receipt Date: 20220516
  Transmission Date: 20220720
  Serious: Yes (Other)
  Sender: FDA-Public Use
  Company Number: LB-NOVARTISPH-NVSC2022LB067992

PATIENT
  Age: 45 Year
  Sex: Female

DRUGS (4)
  1. AFINITOR [Suspect]
     Active Substance: EVEROLIMUS
     Indication: Pancreatic neuroendocrine tumour
     Dosage: 10 MG
     Route: 048
     Dates: start: 20220216
  2. SANDOSTATIN [Concomitant]
     Active Substance: OCTREOTIDE ACETATE
     Indication: Product used for unknown indication
     Dosage: UNK
     Route: 065
  3. GLUCOPHAGE [Concomitant]
     Active Substance: METFORMIN HYDROCHLORIDE
     Indication: Product used for unknown indication
     Dosage: UNK
     Route: 065
  4. NIZORAL [Concomitant]
     Active Substance: KETOCONAZOLE
     Indication: Product used for unknown indication
     Dosage: UNK
     Route: 065

REACTIONS (2)
  - Cushing^s syndrome [Recovered/Resolved]
  - Blood pressure increased [Recovered/Resolved]

NARRATIVE: CASE EVENT DATE: 20220220
